FAERS Safety Report 5896283-1 (Version None)
Quarter: 2008Q3

REPORT INFORMATION
  Report Type: 
  Country: None (occurrence: None)
  Receive Date: 20080924
  Receipt Date: 20070802
  Transmission Date: 20090109
  Serious: Yes (Other)
  Sender: FDA-Public Use
  Company Number: US-ASTRAZENECA-2007UW18687

PATIENT
  Age: 63 Year
  Sex: Male
  Weight: 108.9 kg

DRUGS (6)
  1. SEROQUEL [Suspect]
     Indication: DEPRESSION
     Route: 048
     Dates: start: 20000101, end: 20060101
  2. SEROQUEL [Suspect]
     Indication: POST-TRAUMATIC STRESS DISORDER
     Route: 048
     Dates: start: 20000101, end: 20060101
  3. LAMICTAL [Concomitant]
  4. CITAO PRAM [Concomitant]
  5. ZYPREXA [Concomitant]
  6. RISPERDAL [Concomitant]

REACTIONS (3)
  - DIABETIC COMA [None]
  - TYPE 2 DIABETES MELLITUS [None]
  - WEIGHT INCREASED [None]
